FAERS Safety Report 5419150-6 (Version None)
Quarter: 2007Q3

REPORT INFORMATION
  Report Type: 
  Country: None (occurrence: None)
  Receive Date: 20070820
  Receipt Date: 20070808
  Transmission Date: 20080115
  Serious: Yes (Hospitalization)
  Sender: FDA-Public Use
  Company Number: HQWYE528913AUG07

PATIENT
  Sex: Female
  Weight: 114.6 kg

DRUGS (3)
  1. EFFEXOR XR [Suspect]
     Indication: DEPRESSION
     Route: 048
     Dates: start: 20070206
  2. ALLEGRA [Concomitant]
     Indication: SEASONAL ALLERGY
     Dosage: UNKNOWN
     Route: 065
     Dates: start: 20060215
  3. ALEVE [Concomitant]
     Indication: HEADACHE
     Dosage: UNKNOWN
     Route: 065
     Dates: start: 20070220

REACTIONS (1)
  - MENTAL DISORDER [None]
